FAERS Safety Report 6961183-2 (Version None)
Quarter: 2010Q3

REPORT INFORMATION
  Report Type: 
  Country: None (occurrence: None)
  Receive Date: 20100901
  Receipt Date: 20100826
  Transmission Date: 20110219
  Serious: Yes (Death, Other)
  Sender: FDA-Public Use
  Company Number: JP-JNJFOC-20100808987

PATIENT
  Age: 58 Year
  Sex: Female

DRUGS (1)
  1. DOXORUBICIN HCL [Suspect]
     Indication: OVARIAN CANCER RECURRENT
     Dosage: DOSE INTERRUPTED
     Route: 042

REACTIONS (2)
  - MULTI-ORGAN FAILURE [None]
  - OVARIAN CANCER [None]
